FAERS Safety Report 10101259 (Version 1)
Quarter: 2014Q2

REPORT INFORMATION
  Report Type: Spontaneous
  Country: US (occurrence: US)
  Receive Date: 20140424
  Receipt Date: 20140424
  Transmission Date: 20141212
  Serious: No
  Sender: FDA-Public Use
  Company Number: US-PFIZER INC-2014110847

PATIENT
  Age: 76 Year
  Sex: Female

DRUGS (10)
  1. DETROL LA [Suspect]
     Dosage: UNK
  2. VISTARIL [Suspect]
     Dosage: UNK
  3. IBUPROFEN [Suspect]
     Dosage: UNK
  4. QUININE [Suspect]
     Dosage: UNK
  5. MACRODANTIN [Suspect]
     Dosage: UNK
  6. CASTOR OIL [Suspect]
     Dosage: UNK
  7. METHOCARBAMOL [Suspect]
     Dosage: UNK
  8. CYMBALTA [Suspect]
     Dosage: UNK
  9. IODINE [Suspect]
     Dosage: UNK
  10. PENICILLIN [Suspect]
     Dosage: UNK

REACTIONS (1)
  - Drug hypersensitivity [Unknown]
